FAERS Safety Report 5447575-1 (Version None)
Quarter: 2007Q3

REPORT INFORMATION
  Report Type: 
  Country: None (occurrence: None)
  Receive Date: 20070905
  Receipt Date: 20070905
  Transmission Date: 20080115
  Serious: Yes (Hospitalization)
  Sender: FDA-Public Use
  Company Number: None

PATIENT
  Age: 53 Year
  Sex: Female
  Weight: 63.3 kg

DRUGS (6)
  1. ALLOPURINOL [Suspect]
     Dosage: 300 MG DAILY PO
     Route: 048
  2. GLEEVEC [Concomitant]
  3. ASPIRIN [Concomitant]
  4. FOLIC ACID [Concomitant]
  5. PAXIL CR [Concomitant]
  6. DARVOCET [Concomitant]

REACTIONS (11)
  - ALANINE AMINOTRANSFERASE INCREASED [None]
  - ASPARTATE AMINOTRANSFERASE INCREASED [None]
  - BLOOD ALKALINE PHOSPHATASE INCREASED [None]
  - BLOOD BILIRUBIN INCREASED [None]
  - CHILLS [None]
  - DRUG TOXICITY [None]
  - HEPATOTOXICITY [None]
  - MALAISE [None]
  - PAIN [None]
  - PYREXIA [None]
  - RASH PRURITIC [None]
